FAERS Safety Report 10406314 (Version 1)
Quarter: 2014Q3

REPORT INFORMATION
  Report Type: Spontaneous
  Country: IT (occurrence: None)
  Receive Date: 20140821
  Receipt Date: 20140821
  Transmission Date: 20150326
  Serious: Yes (Death, Hospitalization)
  Sender: FDA-Public Use
  Company Number: IMP_07838_2014

PATIENT
  Age: 53 Year
  Sex: Male

DRUGS (1)
  1. METFORMIN [Suspect]
     Active Substance: METFORMIN HYDROCHLORIDE
     Indication: DIABETES MELLITUS
     Route: 048

REACTIONS (8)
  - Loss of consciousness [None]
  - Dialysis [None]
  - Hypotension [None]
  - Lactic acidosis [None]
  - Toxicity to various agents [None]
  - Renal failure acute [None]
  - Anaemia [None]
  - Metabolic alkalosis [None]
